FAERS Safety Report 12205478 (Version 1)
Quarter: 2016Q1

REPORT INFORMATION
  Report Type: Spontaneous
  Country: GB (occurrence: GB)
  Receive Date: 20160323
  Receipt Date: 20160323
  Transmission Date: 20160526
  Serious: Yes (Disabling, Other)
  Sender: FDA-Public Use
  Company Number: GB-PFIZER INC-2016168541

PATIENT
  Age: 33 Year
  Sex: Male
  Weight: 80 kg

DRUGS (1)
  1. SERTRALINE HCL [Suspect]
     Active Substance: SERTRALINE HYDROCHLORIDE
     Dosage: TAPERING DOSE 50MG TO 25MG TO 12.5MG

REACTIONS (10)
  - Fatigue [Recovered/Resolved]
  - Anxiety [Recovering/Resolving]
  - Foreign body sensation in eyes [Recovered/Resolved]
  - Amnesia [Recovered/Resolved]
  - Asthenopia [Unknown]
  - Speech disorder [Recovered/Resolved]
  - Withdrawal syndrome [Unknown]
  - Impaired work ability [Unknown]
  - Cognitive disorder [Recovered/Resolved]
  - Feeling jittery [Unknown]
